FAERS Safety Report 9634014 (Version 2)
Quarter: 2013Q4

REPORT INFORMATION
  Report Type: Spontaneous
  Country: US (occurrence: US)
  Receive Date: 20131021
  Receipt Date: 20131028
  Transmission Date: 20140711
  Serious: No
  Sender: FDA-Public Use
  Company Number: US-009507513-1310USA007670

PATIENT
  Age: 17 Year
  Sex: Female

DRUGS (4)
  1. SAPHRIS [Suspect]
     Indication: MAJOR DEPRESSION
     Dosage: 5 MG, BID
     Route: 060
     Dates: start: 20131010
  2. SAPHRIS [Suspect]
     Indication: HALLUCINATION, VISUAL
  3. PROZAC [Concomitant]
  4. TRAZODONE HYDROCHLORIDE [Concomitant]

REACTIONS (3)
  - Somnolence [Not Recovered/Not Resolved]
  - Hypoaesthesia oral [Recovered/Resolved]
  - Dizziness [Recovered/Resolved]
